FAERS Safety Report 10914348 (Version 1)
Quarter: 2015Q1

REPORT INFORMATION
  Report Type: Spontaneous
  Country: US (occurrence: US)
  Receive Date: 20150313
  Receipt Date: 20150313
  Transmission Date: 20150721
  Serious: No
  Sender: FDA-Public Use
  Company Number: US-GLAXOSMITHKLINE-US2015GSK013980

PATIENT
  Sex: Female

DRUGS (2)
  1. FLUTICASONE PROPIONATE NASAL SPRAY [Suspect]
     Active Substance: FLUTICASONE PROPIONATE
     Indication: SINUSITIS
     Dosage: 50 ?G, BID
     Route: 065
     Dates: start: 20141208
  2. FLUTICASONE PROPIONATE NASAL SPRAY [Suspect]
     Active Substance: FLUTICASONE PROPIONATE
     Dosage: 50 ?G, QD
     Route: 065

REACTIONS (1)
  - Skin discolouration [Not Recovered/Not Resolved]

NARRATIVE: CASE EVENT DATE: 20150122
